FAERS Safety Report 22608192 (Version 1)
Quarter: 2023Q2

REPORT INFORMATION
  Report Type: Other
  Country: US (occurrence: None)
  Receive Date: 20230616
  Receipt Date: 20230616
  Transmission Date: 20230721
  Serious: Yes (Other)
  Sender: FDA-Public Use
  Company Number: US-ROCHE-3365225

PATIENT
  Age: 53 Year
  Sex: Female

DRUGS (14)
  1. OCREVUS [Suspect]
     Active Substance: OCRELIZUMAB
     Indication: Multiple sclerosis
     Dosage: DATE OF TREATMENT: 15/SEP/2021
     Route: 065
  2. SOLU-MEDROL [Concomitant]
     Active Substance: METHYLPREDNISOLONE SODIUM SUCCINATE
  3. BENADRYL [Concomitant]
     Active Substance: DIPHENHYDRAMINE HYDROCHLORIDE
  4. MOUNJARO [Concomitant]
     Active Substance: TIRZEPATIDE
  5. MODAFINIL [Concomitant]
     Active Substance: MODAFINIL
  6. ABILIFY [Concomitant]
     Active Substance: ARIPIPRAZOLE
     Dosage: 10 MG TABLET ORALLY ONCE A DAY
  7. LEVOTHYROXINE SODIUM [Concomitant]
     Active Substance: LEVOTHYROXINE SODIUM
     Dosage: 50 MCG TABLET IN THE MORNING ON AN EMPTY STOMACH ORALLY ONCE A DAY
  8. CORTIN [HYDROCORTISONE] [Concomitant]
     Dosage: 30 MG TABLET ORALLY ONCE A DAY
  9. LEXAPRO [Concomitant]
     Active Substance: ESCITALOPRAM OXALATE
     Dosage: 20 MG TABLET ORALLY ONCE A DAY
  10. ACETAMINOPHEN\HYDROCODONE [Concomitant]
     Active Substance: ACETAMINOPHEN\HYDROCODONE
     Dosage: 10-325 MG TABLET AS NEEDED ORALLY EVERY 6 HOURS
  11. IRON [Concomitant]
     Active Substance: IRON
     Dosage: 325 MG TABLET ORALLY ONCE A DAY
  12. AJOVY [Concomitant]
     Active Substance: FREMANEZUMAB-VFRM
     Dosage: 225 MG/1.5 ML SOLUTION AUTOINJECTOR
  13. MAXALT [Concomitant]
     Active Substance: RIZATRIPTAN BENZOATE
     Dosage: 10 MG TABLET AS NEEDED ONE TIME ORALLY ONCE A DAY
  14. LYRICA [Concomitant]
     Active Substance: PREGABALIN
     Dosage: 300 MG CAPSULE ORALLY TWICE A DAY

REACTIONS (1)
  - Sepsis [Unknown]
